FAERS Safety Report 20746830 (Version 1)
Quarter: 2022Q2

REPORT INFORMATION
  Report Type: Spontaneous
  Country: US (occurrence: US)
  Receive Date: 20220425
  Receipt Date: 20220425
  Transmission Date: 20220721
  Serious: No
  Sender: FDA-Public Use
  Company Number: US-ABBVIE-21K-163-4216338-00

PATIENT
  Sex: Male

DRUGS (1)
  1. SKYRIZI [Suspect]
     Active Substance: RISANKIZUMAB-RZAA
     Indication: Psoriasis
     Route: 058

REACTIONS (6)
  - SARS-CoV-2 test positive [Unknown]
  - Pain [Unknown]
  - Pyrexia [Unknown]
  - Night sweats [Unknown]
  - Chills [Unknown]
  - Fatigue [Unknown]
